FAERS Safety Report 25341147 (Version 1)
Quarter: 2025Q2

REPORT INFORMATION
  Report Type: Spontaneous
  Country: GB (occurrence: GB)
  Receive Date: 20250521
  Receipt Date: 20250521
  Transmission Date: 20250717
  Serious: Yes (Other)
  Sender: RANBAXY
  Company Number: GB-SUN PHARMACEUTICAL INDUSTRIES LTD-2025RR-508136

PATIENT
  Age: 25 Year
  Sex: Female
  Weight: 42 kg

DRUGS (4)
  1. ISOTRETINOIN [Suspect]
     Active Substance: ISOTRETINOIN
     Indication: Ill-defined disorder
     Dosage: 1 DAILY WITH YOUR MAIN MEAL. PPP GROUP C:P
     Route: 065
     Dates: start: 20250220
  2. DROSPIRENONE\ETHINYL ESTRADIOL [Suspect]
     Active Substance: DROSPIRENONE\ETHINYL ESTRADIOL
     Indication: Product used for unknown indication
     Route: 065
  3. TRIMETHOPRIM [Concomitant]
     Active Substance: TRIMETHOPRIM
     Indication: Ill-defined disorder
     Dosage: 20ML(200MG) TWICE DAILY FOR 3 DAYS
     Route: 065
     Dates: start: 20250329, end: 20250401
  4. OTOMIZE [Concomitant]
     Indication: Ill-defined disorder
     Dosage: 1 METERED SPRAY TO AFFECTED EAR(S) 3 TIMES A DA...
     Route: 065
     Dates: start: 20250503

REACTIONS (3)
  - Pregnancy on oral contraceptive [Unknown]
  - Abortion induced [Unknown]
  - Pregnancy [Unknown]

NARRATIVE: CASE EVENT DATE: 20250506
